FAERS Safety Report 6821664-9 (Version None)
Quarter: 2010Q3

REPORT INFORMATION
  Report Type: 
  Country: None (occurrence: None)
  Receive Date: 20100707
  Receipt Date: 20081230
  Transmission Date: 20110219
  Serious: No
  Sender: FDA-Public Use
  Company Number: US-PFIZER INC-2008161002

PATIENT
  Age: 15 Year
  Sex: Female

DRUGS (1)
  1. ZOLOFT [Suspect]
     Dosage: UNK

REACTIONS (1)
  - INSOMNIA [None]
